FAERS Safety Report 23697126 (Version 2)
Quarter: 2024Q2

REPORT INFORMATION
  Report Type: Spontaneous
  Country: US (occurrence: US)
  Receive Date: 20240402
  Receipt Date: 20240415
  Transmission Date: 20240717
  Serious: Yes (Hospitalization)
  Sender: FDA-Public Use
  Company Number: US-IPSEN Group, Research and Development-2024-05206

PATIENT
  Age: 80 Year
  Sex: Male
  Weight: 76 kg

DRUGS (3)
  1. TAZVERIK [Suspect]
     Active Substance: TAZEMETOSTAT HYDROBROMIDE
     Indication: Prostate cancer metastatic
     Route: 048
     Dates: start: 20231113, end: 20240304
  2. TAZVERIK [Suspect]
     Active Substance: TAZEMETOSTAT HYDROBROMIDE
     Indication: Off label use
     Route: 048
     Dates: start: 20231214, end: 20240304
  3. TALAZOPARIB [Suspect]
     Active Substance: TALAZOPARIB
     Indication: Prostate cancer metastatic
     Route: 048
     Dates: start: 20231113, end: 20240304

REACTIONS (9)
  - Disease progression [Unknown]
  - Speech disorder [Unknown]
  - Asthenia [Unknown]
  - Flank pain [Unknown]
  - Haematuria [Unknown]
  - Chills [Unknown]
  - Dysuria [Unknown]
  - Urinary tract infection [Unknown]
  - Off label use [Unknown]

NARRATIVE: CASE EVENT DATE: 20231113
